FAERS Safety Report 24112922 (Version 1)
Quarter: 2024Q3

REPORT INFORMATION
  Report Type: Spontaneous
  Country: CA (occurrence: CA)
  Receive Date: 20240719
  Receipt Date: 20240719
  Transmission Date: 20241016
  Serious: Yes (Other)
  Sender: HIKMA
  Company Number: CA-HIKMA PHARMACEUTICALS USA INC.-CA-H14001-24-06312

PATIENT

DRUGS (3)
  1. CEFAZOLIN [Suspect]
     Active Substance: CEFAZOLIN
     Indication: Pyrexia
     Dosage: UNKNOWN
     Route: 065
  2. METRONIDAZOLE [Suspect]
     Active Substance: METRONIDAZOLE
     Indication: Pyrexia
     Dosage: UNKNOWN
     Route: 065
  3. MIRENA [Suspect]
     Active Substance: LEVONORGESTREL
     Indication: Contraception
     Dosage: 20 MICROGRAM, QD
     Route: 015

REACTIONS (3)
  - Pelvic inflammatory disease [Recovering/Resolving]
  - Tubo-ovarian abscess [Recovering/Resolving]
  - Drug ineffective [Recovering/Resolving]
